FAERS Safety Report 11540431 (Version 1)
Quarter: 2015Q3

REPORT INFORMATION
  Report Type: Spontaneous
  Country: US (occurrence: US)
  Receive Date: 20150923
  Receipt Date: 20150923
  Transmission Date: 20151125
  Serious: No
  Sender: FDA-Public Use
  Company Number: US-BEH-2014046056

PATIENT
  Sex: Female
  Weight: 81 kg

DRUGS (48)
  1. PRIVIGEN [Suspect]
     Active Substance: HUMAN IMMUNOGLOBULIN G
     Indication: IMMUNODEFICIENCY
     Route: 042
  2. PRIVIGEN [Suspect]
     Active Substance: HUMAN IMMUNOGLOBULIN G
     Route: 042
  3. MELOXICAM. [Concomitant]
     Active Substance: MELOXICAM
  4. ASPIRIN. [Concomitant]
     Active Substance: ASPIRIN
  5. LMX [Concomitant]
     Active Substance: LIDOCAINE
  6. PRIVIGEN [Suspect]
     Active Substance: HUMAN IMMUNOGLOBULIN G
     Route: 042
  7. TUMERIC 500 MG [Concomitant]
  8. METHOCARBAMOL. [Concomitant]
     Active Substance: METHOCARBAMOL
  9. FLONASE [Concomitant]
     Active Substance: FLUTICASONE PROPIONATE
  10. ANTIVERT [Concomitant]
     Active Substance: MECLIZINE HYDROCHLORIDE
  11. PRIVIGEN [Suspect]
     Active Substance: HUMAN IMMUNOGLOBULIN G
     Route: 042
  12. ZYFLO [Concomitant]
     Active Substance: ZILEUTON
  13. ACETAMINOPHEN. [Concomitant]
     Active Substance: ACETAMINOPHEN
  14. TERBINAFFINE [Concomitant]
  15. CALCIUM [Concomitant]
     Active Substance: CALCIUM
  16. PRIVINIL [Concomitant]
  17. IRON [Concomitant]
     Active Substance: IRON
  18. DIPHENHYDRAMINE. [Concomitant]
     Active Substance: DIPHENHYDRAMINE
  19. TYLENOLES [Concomitant]
  20. DAILY MULTIVITAMIN TABLET [Concomitant]
  21. LEVOTHYROXINE SODIUM. [Concomitant]
     Active Substance: LEVOTHYROXINE SODIUM
  22. PRIVIGEN [Suspect]
     Active Substance: HUMAN IMMUNOGLOBULIN G
     Route: 042
  23. LIDOCAINE/PRILOCAINE [Concomitant]
  24. EPIPEN [Concomitant]
     Active Substance: EPINEPHRINE
  25. HYDROCLOROTHIAZIDE [Concomitant]
  26. LAMISIL [Concomitant]
     Active Substance: TERBINAFINE HYDROCHLORIDE
  27. COREG [Concomitant]
     Active Substance: CARVEDILOL
  28. ALEVE [Concomitant]
     Active Substance: NAPROXEN SODIUM
  29. CRESTOR [Concomitant]
     Active Substance: ROSUVASTATIN CALCIUM
  30. PRIVINIL [Concomitant]
  31. CVS FISH OIL [Concomitant]
  32. LISINOPRIL. [Concomitant]
     Active Substance: LISINOPRIL
  33. NORVASC [Concomitant]
     Active Substance: AMLODIPINE BESYLATE
  34. MULTIVITAMIN [Concomitant]
     Active Substance: VITAMINS
  35. LEVOCETIRIZINE DIHYDROCHLORIDE. [Concomitant]
     Active Substance: LEVOCETIRIZINE DIHYDROCHLORIDE
  36. LEVAQUIN [Concomitant]
     Active Substance: LEVOFLOXACIN
  37. PRIVIGEN [Suspect]
     Active Substance: HUMAN IMMUNOGLOBULIN G
     Indication: SELECTIVE IGG SUBCLASS DEFICIENCY
     Route: 042
  38. PRIVIGEN [Suspect]
     Active Substance: HUMAN IMMUNOGLOBULIN G
     Route: 042
  39. SYNTHROID [Concomitant]
     Active Substance: LEVOTHYROXINE SODIUM
  40. METFORMIN [Concomitant]
     Active Substance: METFORMIN HYDROCHLORIDE
  41. ASTELIN [Concomitant]
     Active Substance: AZELASTINE HYDROCHLORIDE
  42. GLIMEPIRIDE. [Concomitant]
     Active Substance: GLIMEPIRIDE
  43. AUGMENTIN [Concomitant]
     Active Substance: AMOXICILLIN\CLAVULANATE POTASSIUM
  44. SODIUM CHLORIDE. [Concomitant]
     Active Substance: SODIUM CHLORIDE
  45. CVS VITAMIN D3 [Concomitant]
  46. ZYRTEC-D [Concomitant]
     Active Substance: CETIRIZINE HYDROCHLORIDE\PSEUDOEPHEDRINE HYDROCHLORIDE
  47. DOXYCYCLINE. [Concomitant]
     Active Substance: DOXYCYCLINE
  48. SUDAFED 12 HOUR [Concomitant]
     Active Substance: PSEUDOEPHEDRINE HYDROCHLORIDE

REACTIONS (1)
  - Sinusitis [Unknown]
